FAERS Safety Report 21970789 (Version 1)
Quarter: 2023Q1

REPORT INFORMATION
  Report Type: Report from Study
  Country: US (occurrence: US)
  Receive Date: 20230209
  Receipt Date: 20230209
  Transmission Date: 20230418
  Serious: Yes (Death)
  Sender: FDA-Public Use
  Company Number: US-Vifor (International) Inc.-VIT-2023-00126

PATIENT
  Age: 80 Year
  Sex: Male
  Weight: 79 kg

DRUGS (22)
  1. VELPHORO [Suspect]
     Active Substance: SUCROFERRIC OXYHYDROXIDE
     Indication: Product used for unknown indication
     Dosage: 2 TABLETS TID?REFILL: NONE
     Route: 048
     Dates: start: 20180926, end: 20220301
  2. AMIODARONE [Concomitant]
     Active Substance: AMIODARONE
     Dosage: EVERY MORNING?REFILL: NONE.
     Route: 048
  3. ASPIRIN [Concomitant]
     Active Substance: ASPIRIN
     Dosage: DELAYED RELEASE.?QUANTITY: 90?REFILL: 4
     Route: 048
  4. ATORVASTATIN [Concomitant]
     Active Substance: ATORVASTATIN
     Dosage: EVERY NIGHT.?QUANTITY: 90?REFILL: 12
     Route: 048
  5. CITALOPRAM [Concomitant]
     Active Substance: CITALOPRAM HYDROBROMIDE
     Dosage: QUANTITY: 30?REFILL: 3
     Route: 048
     Dates: start: 20190212
  6. CLOBETASOL [Concomitant]
     Active Substance: CLOBETASOL
     Dosage: REFILL: NONE
     Route: 061
  7. CLOPIDOGREL [Concomitant]
     Active Substance: CLOPIDOGREL BISULFATE
     Dosage: EVERY MORNING?REFILL: NONE
     Route: 048
  8. DICLOFENAC [Concomitant]
     Active Substance: DICLOFENAC
     Indication: Back pain
     Dosage: 2 GRAMS, 4 TIMES A DAY AS NEEDED
     Route: 061
  9. ELIQUIS [Concomitant]
     Active Substance: APIXABAN
     Dosage: QUANTITY: 180?REFILL: NONE
     Route: 048
  10. FUROSEMIDE [Concomitant]
     Active Substance: FUROSEMIDE
     Dosage: 2 TABLETS TWICE A DAY?QUANTITY: 120?REFILL: 5
     Route: 048
  11. GLIMEPIRIDE [Concomitant]
     Active Substance: GLIMEPIRIDE
     Dosage: EVERY MORNING.?QUANTITY: 30?REFILL: 11
     Route: 048
  12. HYDROXYZINE HYDROCHLORIDE [Concomitant]
     Active Substance: HYDROXYZINE HYDROCHLORIDE
     Dosage: ONCE A DAY AS NEEDED
     Route: 048
  13. ISOSORBIDE MONONITRATE [Concomitant]
     Active Substance: ISOSORBIDE MONONITRATE
     Dosage: EXTENDED RELEASE 24 HOURS.?QUANTITY: 90?REFILL: 6
     Route: 048
  14. LANTUS SOLOSTAR [Concomitant]
     Active Substance: INSULIN GLARGINE
     Dosage: U-100 INSULIN 100UNITML (3ML) - INJECT 50 UNIT AT BEDTIME.?QUANTITY: 5?REFILL: 5
     Route: 058
  15. LOVASTATIN [Concomitant]
     Active Substance: LOVASTATIN
     Dosage: EVERY NIGHT.?QUANTITY: 90?REFILL: 3
     Route: 048
  16. LOVASTATIN [Concomitant]
     Active Substance: LOVASTATIN
     Dosage: EVERY NIGHT.?QUANTITY: 90?REFILL: 3
     Route: 048
  17. METHOCARBAMOL [Concomitant]
     Active Substance: METHOCARBAMOL
     Dosage: 1 TABLET 1 HOUR PRE-TREATMENT AS NEEDED.?REFILL: 1
     Route: 048
  18. METOPROLOL TARTRATE [Concomitant]
     Active Substance: METOPROLOL TARTRATE
     Dosage: QUANTITY: 60?REFILL: 3
     Route: 048
  19. MIDODRINE [Concomitant]
     Active Substance: MIDODRINE
     Indication: Hypotension
     Dosage: 2 TABLETS 3 TIMES A WEEK AS NEEDED.?QUANTITY: 26?REFILL: 4
     Route: 048
  20. NITROSTAT [Concomitant]
     Active Substance: NITROGLYCERIN
     Indication: Chest pain
     Dosage: 1 TABLET UNDER TONGUE AS NEEDED, EVERY 5 MINUTES FOR A TOTAL OF 3 DOSES?QUANTITY: 60?REFILL: 5
     Route: 060
  21. PANTOPRAZOLE [Concomitant]
     Active Substance: PANTOPRAZOLE
     Dosage: DELAYED RELEASE.?REFILL: NONE
     Route: 048
  22. VELTASSA [Concomitant]
     Active Substance: PATIROMER
     Dosage: 1 PACKET DISSOLVED IN WATER ONCE A DAY AS DIRECTED?QUANTITY: 90?REFILL: 4
     Route: 048

REACTIONS (1)
  - Coronary artery disease [Fatal]
